FAERS Safety Report 16985756 (Version 4)
Quarter: 2020Q4

REPORT INFORMATION
  Report Type: Report from Study
  Country: DE (occurrence: DE)
  Receive Date: 20191101
  Receipt Date: 20201124
  Transmission Date: 20210113
  Serious: Yes (Hospitalization, Other)
  Sender: FDA-Public Use
  Company Number: NVSC2019DE021663

PATIENT
  Age: 11 Year
  Sex: Female
  Weight: 50.8 kg

DRUGS (2)
  1. ILARIS [Suspect]
     Active Substance: CANAKINUMAB
     Indication: MUCKLE-WELLS SYNDROME
     Dosage: 150 MG, UNKNOWN
     Route: 058
     Dates: start: 20180617
  2. ILARIS [Suspect]
     Active Substance: CANAKINUMAB
     Dosage: 150 MG, UNKNOWN
     Route: 058
     Dates: start: 20190310

REACTIONS (2)
  - Glomerulonephritis [Recovered/Resolved]
  - Alport^s syndrome [Recovered/Resolved]

NARRATIVE: CASE EVENT DATE: 20190326
